FAERS Safety Report 5894110-X (Version None)
Quarter: 2008Q3

REPORT INFORMATION
  Report Type: 
  Country: None (occurrence: None)
  Receive Date: 20080923
  Receipt Date: 20080627
  Transmission Date: 20090109
  Serious: No
  Sender: FDA-Public Use
  Company Number: US-ASTRAZENECA-2008UW00349

PATIENT
  Age: 636 Month
  Sex: Female
  Weight: 81.8 kg

DRUGS (6)
  1. SEROQUEL [Suspect]
     Indication: SCHIZOAFFECTIVE DISORDER
     Route: 048
     Dates: start: 20020701
  2. THORAZINE [Concomitant]
     Dates: start: 19970101, end: 19800101
  3. ZYPREXA [Concomitant]
     Dates: start: 20060101
  4. XANAX [Concomitant]
     Dates: start: 19980101
  5. WELLBUTRIN [Concomitant]
     Dates: start: 20080101
  6. EFFEXOR [Concomitant]
     Dates: start: 20060101

REACTIONS (3)
  - BLOOD CHOLESTEROL INCREASED [None]
  - OBESITY [None]
  - TYPE 2 DIABETES MELLITUS [None]
